FAERS Safety Report 8193474-4 (Version None)
Quarter: 2012Q1

REPORT INFORMATION
  Report Type: 
  Country: None (occurrence: None)
  Receive Date: 20120308
  Receipt Date: 20120302
  Transmission Date: 20120608
  Serious: Yes (Other)
  Sender: FDA-Public Use
  Company Number: US-PFIZER INC-2011258580

PATIENT
  Sex: Female
  Weight: 72.6 kg

DRUGS (2)
  1. EFFEXOR XR [Suspect]
     Indication: DEPRESSION
     Dosage: 150 MG, 1X/DAY
     Route: 048
     Dates: start: 20070101, end: 20090101
  2. DICLOFENAC [Concomitant]
     Indication: EYE DISORDER
     Dosage: UNK

REACTIONS (6)
  - DYSSTASIA [None]
  - HYPERTENSION [None]
  - CLAUSTROPHOBIA [None]
  - DRUG DEPENDENCE [None]
  - PARANOIA [None]
  - FEELING ABNORMAL [None]
